FAERS Safety Report 17579329 (Version 4)
Quarter: 2020Q4

REPORT INFORMATION
  Report Type: Spontaneous
  Country: US (occurrence: US)
  Receive Date: 20200325
  Receipt Date: 20201201
  Transmission Date: 20210113
  Serious: Yes (Hospitalization, Other)
  Sender: FDA-Public Use
  Company Number: US-GILEAD-2020-0456186

PATIENT
  Age: 55 Year
  Sex: Male
  Weight: 58.96 kg

DRUGS (62)
  1. ANDRODERM [Concomitant]
     Active Substance: TESTOSTERONE
  2. MORPHINE SULFATE. [Concomitant]
     Active Substance: MORPHINE SULFATE
  3. PREDNISONE. [Concomitant]
     Active Substance: PREDNISONE
  4. ZESTRIL [Concomitant]
     Active Substance: LISINOPRIL
  5. DOXYCYCLINE. [Concomitant]
     Active Substance: DOXYCYCLINE
  6. ATROVENT HFA [Concomitant]
     Active Substance: IPRATROPIUM BROMIDE
  7. CIPRODEX [Concomitant]
     Active Substance: CIPROFLOXACIN HYDROCHLORIDE\DEXAMETHASONE
  8. CLARITIN [Concomitant]
     Active Substance: LORATADINE
  9. OMEPRAZOLE. [Concomitant]
     Active Substance: OMEPRAZOLE
  10. EPZICOM [Concomitant]
     Active Substance: ABACAVIR SULFATE\LAMIVUDINE
  11. ACETAMINOPHEN. [Concomitant]
     Active Substance: ACETAMINOPHEN
  12. NASONEX [Concomitant]
     Active Substance: MOMETASONE FUROATE
  13. IRON FERROUS GLUCONATE [Concomitant]
     Active Substance: FERROUS GLUCONATE
  14. MUCINEX D [Concomitant]
     Active Substance: GUAIFENESIN\PSEUDOEPHEDRINE HYDROCHLORIDE
  15. NORVIR [Concomitant]
     Active Substance: RITONAVIR
  16. ATIVAN [Concomitant]
     Active Substance: LORAZEPAM
  17. ABILIFY [Concomitant]
     Active Substance: ARIPIPRAZOLE
  18. PSEUDOEPHEDRINE HCL [Concomitant]
     Active Substance: PSEUDOEPHEDRINE HYDROCHLORIDE
  19. TAMIFLU [Concomitant]
     Active Substance: OSELTAMIVIR PHOSPHATE
  20. GUAIFENESIN AND DEXTROMETHORPHAN [Concomitant]
     Active Substance: DEXTROMETHORPHAN\GUAIFENESIN
  21. EPOETIN [Concomitant]
     Active Substance: ERYTHROPOIETIN
  22. PLAVIX [Concomitant]
     Active Substance: CLOPIDOGREL BISULFATE
  23. TRUVADA [Suspect]
     Active Substance: EMTRICITABINE\TENOFOVIR DISOPROXIL FUMARATE
     Indication: HIV INFECTION
     Dosage: UNK
     Route: 048
     Dates: start: 2004, end: 2014
  24. EPIVIR [Concomitant]
     Active Substance: LAMIVUDINE
  25. ISENTRESS [Concomitant]
     Active Substance: RALTEGRAVIR POTASSIUM
  26. PREZISTA [Concomitant]
     Active Substance: DARUNAVIR ETHANOLATE
  27. EFFEXOR [Concomitant]
     Active Substance: VENLAFAXINE HYDROCHLORIDE
  28. ASPRIN [Concomitant]
     Active Substance: ASPIRIN
  29. AVELOX [Concomitant]
     Active Substance: MOXIFLOXACIN HYDROCHLORIDE
  30. DRONABINOL. [Concomitant]
     Active Substance: DRONABINOL
  31. FLUCONAZOLE. [Concomitant]
     Active Substance: FLUCONAZOLE
  32. METOPROLOL SUCCINATE. [Concomitant]
     Active Substance: METOPROLOL SUCCINATE
  33. CEPHALEXIN [CEFALEXIN] [Concomitant]
     Active Substance: CEPHALEXIN
  34. AMOXICILLIN + CLAVULANIC ACID [Concomitant]
     Active Substance: AMOXICILLIN\CLAVULANIC ACID
  35. LEVOFLOXACIN. [Concomitant]
     Active Substance: LEVOFLOXACIN
  36. NEXIUM [Concomitant]
     Active Substance: ESOMEPRAZOLE MAGNESIUM
  37. VIDEX [Concomitant]
     Active Substance: DIDANOSINE
  38. ZIAGEN [Concomitant]
     Active Substance: ABACAVIR SULFATE
  39. ZERIT [Concomitant]
     Active Substance: STAVUDINE
  40. APTIVUS [Concomitant]
     Active Substance: TIPRANAVIR
  41. SYNTHROID [Concomitant]
     Active Substance: LEVOTHYROXINE SODIUM
  42. AZITHROMYCIN ANHYDROUS. [Concomitant]
     Active Substance: AZITHROMYCIN ANHYDROUS
  43. CHANTIX [Concomitant]
     Active Substance: VARENICLINE TARTRATE
  44. OXYCODONE HYDROCHLORIDE. [Concomitant]
     Active Substance: OXYCODONE HYDROCHLORIDE
  45. ULTRAM ER [Concomitant]
     Active Substance: TRAMADOL HYDROCHLORIDE
  46. ZONATUSS [Concomitant]
     Active Substance: BENZONATATE
  47. ADVAIR HFA [Concomitant]
     Active Substance: FLUTICASONE PROPIONATE\SALMETEROL XINAFOATE
  48. MUCINEX [Concomitant]
     Active Substance: GUAIFENESIN
  49. NICOTROL [Concomitant]
     Active Substance: NICOTINE
  50. PROAIR HFA [Concomitant]
     Active Substance: ALBUTEROL SULFATE
  51. VITAMIN D3 [Concomitant]
     Active Substance: CHOLECALCIFEROL
  52. COMBIVIR [Concomitant]
     Active Substance: LAMIVUDINE\ZIDOVUDINE
  53. VIREAD [Suspect]
     Active Substance: TENOFOVIR DISOPROXIL FUMARATE
     Indication: HIV INFECTION
     Dosage: UNK
     Route: 048
     Dates: start: 2005, end: 2010
  54. INTELENCE [Concomitant]
     Active Substance: ETRAVIRINE
  55. CALCIUM CARBONATE. [Concomitant]
     Active Substance: CALCIUM CARBONATE
  56. DEXTROMETHORPHAN [Concomitant]
     Active Substance: DEXTROMETHORPHAN
  57. LIPITOR [Concomitant]
     Active Substance: ATORVASTATIN CALCIUM
  58. MUCUS RELIEF D [Concomitant]
     Active Substance: GUAIFENESIN\PSEUDOEPHEDRINE HYDROCHLORIDE
  59. NAPROXEN. [Concomitant]
     Active Substance: NAPROXEN
  60. ROBAFEN DM [Concomitant]
     Active Substance: DEXTROMETHORPHAN HYDROBROMIDE\GUAIFENESIN
  61. CIPRO [Concomitant]
     Active Substance: CIPROFLOXACIN HYDROCHLORIDE
  62. ROBITUSSIN DM [Concomitant]
     Active Substance: DEXTROMETHORPHAN HYDROBROMIDE\GUAIFENESIN

REACTIONS (14)
  - Economic problem [Not Recovered/Not Resolved]
  - End stage renal disease [Not Recovered/Not Resolved]
  - Osteoporosis [Not Recovered/Not Resolved]
  - Bladder disorder [Unknown]
  - Renal failure [Recovered/Resolved]
  - Depression [Not Recovered/Not Resolved]
  - Acute kidney injury [Recovered/Resolved]
  - Osteopenia [Not Recovered/Not Resolved]
  - Wrist fracture [Recovered/Resolved]
  - Acute kidney injury [Recovered/Resolved]
  - Emotional distress [Not Recovered/Not Resolved]
  - Anxiety [Not Recovered/Not Resolved]
  - Pain [Not Recovered/Not Resolved]
  - Anhedonia [Not Recovered/Not Resolved]

NARRATIVE: CASE EVENT DATE: 2005
